FAERS Safety Report 11691294 (Version 1)
Quarter: 2015Q4

REPORT INFORMATION
  Report Type: Spontaneous
  Country: AU (occurrence: AU)
  Receive Date: 20151102
  Receipt Date: 20151102
  Transmission Date: 20160304
  Serious: Yes (Death, Hospitalization, Other)
  Sender: FDA-Public Use
  Company Number: AU-SA-2015SA170123

PATIENT
  Age: 66 Year
  Sex: Male

DRUGS (6)
  1. BCG FOR IMMUNOTHERAPY [Suspect]
     Active Substance: BACILLUS CALMETTE-GUERIN ANTIGEN, UNSPECIFIED SUBSTRAIN
     Indication: BLADDER TRANSITIONAL CELL CARCINOMA
     Route: 043
  2. BCG FOR IMMUNOTHERAPY [Suspect]
     Active Substance: BACILLUS CALMETTE-GUERIN ANTIGEN, UNSPECIFIED SUBSTRAIN
     Indication: BLADDER TRANSITIONAL CELL CARCINOMA
     Route: 043
  3. INTERFERON ALFA-2B [Suspect]
     Active Substance: INTERFERON ALFA-2B
     Indication: CARCINOMA IN SITU
     Route: 065
  4. BCG FOR IMMUNOTHERAPY [Suspect]
     Active Substance: BACILLUS CALMETTE-GUERIN ANTIGEN, UNSPECIFIED SUBSTRAIN
     Indication: BLADDER TRANSITIONAL CELL CARCINOMA
     Route: 043
  5. BCG FOR IMMUNOTHERAPY [Suspect]
     Active Substance: BACILLUS CALMETTE-GUERIN ANTIGEN, UNSPECIFIED SUBSTRAIN
     Indication: BLADDER TRANSITIONAL CELL CARCINOMA
     Route: 043
  6. INTERFERON ALFA-2B [Suspect]
     Active Substance: INTERFERON ALFA-2B
     Indication: CARCINOMA IN SITU
     Route: 065

REACTIONS (22)
  - Haematuria [Unknown]
  - Hypercalcaemia [Unknown]
  - Cough [Unknown]
  - Sarcoidosis [Unknown]
  - Night sweats [Unknown]
  - Decreased appetite [Unknown]
  - Cardiac arrest [Fatal]
  - Urosepsis [Unknown]
  - Disseminated Bacillus Calmette-Guerin infection [Unknown]
  - Pyrexia [Unknown]
  - Weight decreased [Unknown]
  - Malaise [Unknown]
  - Sepsis [Unknown]
  - Chronic kidney disease [Unknown]
  - Renal impairment [Unknown]
  - Thrombocytopenia [Unknown]
  - Granulomatous liver disease [Unknown]
  - Hyponatraemia [Unknown]
  - Hyperglycaemia [Unknown]
  - Lethargy [Unknown]
  - Atrial fibrillation [Unknown]
  - Oedema peripheral [Unknown]
